FAERS Safety Report 8825051 (Version 2)
Quarter: 2013Q1

REPORT INFORMATION
  Report Type: Spontaneous
  Country: BR (occurrence: BR)
  Receive Date: 20121004
  Receipt Date: 20130329
  Transmission Date: 20140127
  Serious: Yes (Other)
  Sender: FDA-Public Use
  Company Number: PHHY2012BR086927

PATIENT
  Sex: Male

DRUGS (3)
  1. RASILEZ HCT [Suspect]
     Indication: HYPERTENSION
     Dosage: 1 DF, (300 MG ALIS AND 25 MG HYDR) DAILY
     Route: 048
  2. DIOVAN AMLO FIX [Suspect]
     Indication: HYPERTENSION
     Dosage: 1 DF, (320 MG VALS AND 5 MG AMLO) DAILY
     Route: 048
  3. ROSUVASTATIN [Concomitant]
     Indication: BLOOD CHOLESTEROL INCREASED
     Dosage: 1 DF, DAILY
     Route: 048

REACTIONS (1)
  - Haemorrhagic stroke [Recovering/Resolving]
